FAERS Safety Report 14988775 (Version 4)
Quarter: 2019Q2

REPORT INFORMATION
  Report Type: Spontaneous
  Country: JP (occurrence: JP)
  Receive Date: 20180608
  Receipt Date: 20190514
  Transmission Date: 20190711
  Serious: Yes (Hospitalization, Disabling, Other)
  Sender: FDA-Public Use
  Company Number: JP-PFIZER INC-2018226890

PATIENT
  Age: 73 Year
  Sex: Male

DRUGS (10)
  1. SOMAVERT [Suspect]
     Active Substance: PEGVISOMANT
     Indication: ACROMEGALY
     Dosage: 20 MG, 1X/DAY
     Route: 058
     Dates: start: 20110113
  2. ARTIST [Concomitant]
     Active Substance: CARVEDILOL
     Indication: CARDIAC FAILURE CHRONIC
     Dosage: 10 MG, 1X/DAY
     Route: 048
     Dates: start: 20100414
  3. TELMISARTAN. [Concomitant]
     Active Substance: TELMISARTAN
     Indication: HYPERTENSION
     Dosage: 40 MG, DAILY
     Route: 048
     Dates: start: 20181205
  4. FERROUS SULFATE. [Concomitant]
     Active Substance: FERROUS SULFATE
     Indication: IRON DEFICIENCY ANAEMIA
     Dosage: 105 MG, 2X/DAY
     Route: 048
     Dates: start: 20181105
  5. FUROSEMIDE. [Concomitant]
     Active Substance: FUROSEMIDE
     Indication: CARDIAC FAILURE CONGESTIVE
     Dosage: 10 MG, 1X/DAY
     Route: 048
     Dates: start: 20100414
  6. FUROSEMIDE. [Concomitant]
     Active Substance: FUROSEMIDE
     Indication: CARDIAC FAILURE CHRONIC
  7. CORTRIL [HYDROCORTISONE ACETATE] [Concomitant]
     Indication: ADRENAL INSUFFICIENCY
     Dosage: 15 MG, 1X/DAY
     Route: 048
     Dates: start: 20110512
  8. THYRADIN-S [Concomitant]
     Active Substance: LEVOTHYROXINE
     Indication: SECONDARY HYPOTHYROIDISM
     Dosage: 50 UG, 1X/DAY
     Route: 048
     Dates: start: 20130808
  9. AMIODARONE [Concomitant]
     Active Substance: AMIODARONE
     Indication: VENTRICULAR TACHYCARDIA
     Dosage: 100 MG, 1X/DAY
     Route: 048
     Dates: start: 20100414
  10. SPIRONOLACTONE. [Concomitant]
     Active Substance: SPIRONOLACTONE
     Indication: OEDEMA DUE TO CARDIAC DISEASE
     Dosage: 25 MG, 1X/DAY
     Route: 048
     Dates: start: 20100603

REACTIONS (1)
  - Osteoarthritis [Recovered/Resolved with Sequelae]

NARRATIVE: CASE EVENT DATE: 2016
